FAERS Safety Report 13857829 (Version 2)
Quarter: 2017Q4

REPORT INFORMATION
  Report Type: Report from Study
  Country: GR (occurrence: GR)
  Receive Date: 20170811
  Receipt Date: 20171012
  Transmission Date: 20180320
  Serious: Yes (Other)
  Sender: FDA-Public Use
  Company Number: PHHY2016GR176518

PATIENT
  Age: 51 Year
  Sex: Male
  Weight: 62 kg

DRUGS (2)
  1. EXJADE [Suspect]
     Active Substance: DEFERASIROX
     Indication: SICKLE CELL ANAEMIA
     Dosage: 10 MG/KG, QD
     Route: 048
     Dates: start: 20150515
  2. HYDROXYUREA. [Concomitant]
     Active Substance: HYDROXYUREA
     Indication: SICKLE CELL ANAEMIA
     Dosage: 15 MG/KG, UNK
     Route: 065
     Dates: start: 19940101

REACTIONS (4)
  - Haemoglobin decreased [Recovered/Resolved]
  - Bone marrow failure [Recovered/Resolved]
  - Haematocrit decreased [Unknown]
  - Anaemia [Recovered/Resolved]

NARRATIVE: CASE EVENT DATE: 20161114
